FAERS Safety Report 9562361 (Version 1)
Quarter: 2013Q3

REPORT INFORMATION
  Report Type: Report from Study
  Country: US (occurrence: US)
  Receive Date: 20130927
  Receipt Date: 20130927
  Transmission Date: 20140515
  Serious: Yes (Other)
  Sender: FDA-Public Use
  Company Number: US-ABBVIE-13P-163-1149328-00

PATIENT
  Sex: Female

DRUGS (7)
  1. HUMIRA [Suspect]
     Indication: RHEUMATOID ARTHRITIS
     Dates: start: 201210, end: 20130506
  2. HUMIRA [Suspect]
     Dates: start: 20130520
  3. METHOTREXATE [Concomitant]
     Indication: PRODUCT USED FOR UNKNOWN INDICATION
  4. GLYBURIDE [Concomitant]
     Indication: DIABETES MELLITUS
     Dosage: 5/500MG, 2 TABS IN MORNING AND 1 TAB IN AFTERNOON
  5. LEVOTHYROXINE SODIUM [Concomitant]
     Indication: HYPOTHYROIDISM
  6. LOSARTAN [Concomitant]
     Indication: PROPHYLAXIS
  7. LOSARTAN [Concomitant]
     Indication: HYPERTENSION

REACTIONS (3)
  - Bunion [Recovered/Resolved]
  - Chondropathy [Recovered/Resolved]
  - Pain in extremity [Recovered/Resolved]
